FAERS Safety Report 18998207 (Version 1)
Quarter: 2021Q1

REPORT INFORMATION
  Report Type: Spontaneous
  Country: IN (occurrence: IN)
  Receive Date: 20210311
  Receipt Date: 20210311
  Transmission Date: 20210420
  Serious: Yes (Other)
  Sender: FDA-Public Use
  Company Number: IN-PFIZER INC-2021133434

PATIENT
  Age: 54 Year
  Sex: Female

DRUGS (10)
  1. VIT D [Concomitant]
     Active Substance: VITAMIN D NOS
     Dosage: UNK, MONTHLY (INJ VIT D BLAC U IM (3 MONTHLY)
     Route: 030
  2. ZOLEDRONIC ACID [Concomitant]
     Active Substance: ZOLEDRONIC ACID
     Dosage: 4 MG (4 MG IN 100ML NS OVER 20MIN)
  3. ZINCOVIT [ASCORBIC ACID;BIOTIN;CHROMIUM;COLECALCIFEROL;COPPER;FOLIC AC [Concomitant]
     Dosage: 1 DF, 1X/DAY (1 TAB ONCE DAILY X 3 M)
  4. ULTRACET [Concomitant]
     Active Substance: ACETAMINOPHEN\TRAMADOL HYDROCHLORIDE
     Indication: PAIN
     Dosage: UNK (1 SOS)
  5. CCM [Concomitant]
     Dosage: 2 DF, 2X/DAY (3 MONTH)
  6. ASPIRIN. [Concomitant]
     Active Substance: ASPIRIN
     Dosage: 75 MG, 1X/DAY (AFTER LUNCH) X TO BE CONTINUE
  7. CRIZALK [Suspect]
     Active Substance: CRIZOTINIB
     Indication: NON-SMALL CELL LUNG CANCER METASTATIC
     Dosage: 250 MG, 2X/DAY (1?0?1 TWICE DAILY X 3 MONTH)
     Route: 048
     Dates: start: 20200709
  8. HAEMUP [Concomitant]
     Dosage: 15 ML, 1X/DAY (ONCE DAILY X 1 MONTH)
  9. VITAMIN D [ERGOCALCIFEROL] [Concomitant]
     Active Substance: ERGOCALCIFEROL
     Dosage: UNK UNK, MONTHLY (60K MONTHLY ONCE X 3 M)
  10. ZOLASTA [Concomitant]
     Dosage: 100 ML, MONTHLY (IV 100ML NS?20MIN (MONTHLY)
     Route: 042

REACTIONS (6)
  - Pleural effusion [Unknown]
  - Spinal osteoarthritis [Unknown]
  - Haematocrit decreased [Unknown]
  - Red blood cell count decreased [Unknown]
  - Aortic arteriosclerosis [Unknown]
  - Haemoglobin decreased [Unknown]

NARRATIVE: CASE EVENT DATE: 2020
